FAERS Safety Report 7012074-2 (Version None)
Quarter: 2010Q3

REPORT INFORMATION
  Report Type: 
  Country: None (occurrence: None)
  Receive Date: 20100924
  Receipt Date: 20100914
  Transmission Date: 20110219
  Serious: Yes (Hospitalization)
  Sender: FDA-Public Use
  Company Number: AT-ABBOTT-10P-009-0664892-00

PATIENT
  Age: 28 Year
  Sex: Male
  Weight: 39.9 kg

DRUGS (24)
  1. ZEMPLAR [Suspect]
     Indication: HYPERPARATHYROIDISM SECONDARY
     Dates: start: 20090526, end: 20090709
  2. ZEMPLAR [Suspect]
     Dates: start: 20090709, end: 20090806
  3. ZEMPLAR [Suspect]
     Dates: start: 20090806, end: 20091020
  4. ZEMPLAR [Suspect]
     Dates: start: 20091020, end: 20100126
  5. ZEMPLAR [Suspect]
     Dates: start: 20100126, end: 20100811
  6. RENAGEL [Concomitant]
     Indication: PRODUCT USED FOR UNKNOWN INDICATION
     Dosage: 2-2-2
     Route: 048
     Dates: start: 20090810
  7. DIOVAN [Concomitant]
     Indication: HYPERTENSION
     Dosage: 1-0-1
     Route: 048
     Dates: start: 20100603, end: 20100811
  8. ZANIDIP [Concomitant]
     Indication: HYPERTENSION
     Route: 048
     Dates: start: 20100703, end: 20100811
  9. PANTOLOC [Concomitant]
     Indication: GASTRITIS
     Route: 048
     Dates: start: 20100807
  10. ANTIPHOS [Concomitant]
     Indication: PRODUCT USED FOR UNKNOWN INDICATION
     Route: 048
     Dates: start: 20080605, end: 20090810
  11. THOMAPYRIN [Concomitant]
     Indication: PRODUCT USED FOR UNKNOWN INDICATION
     Route: 048
     Dates: start: 20080306
  12. NEORECORMON [Concomitant]
     Indication: PRODUCT USED FOR UNKNOWN INDICATION
     Route: 042
     Dates: start: 20070605, end: 20091117
  13. FERRLECIT [Concomitant]
     Indication: PRODUCT USED FOR UNKNOWN INDICATION
     Route: 042
     Dates: start: 20070807
  14. CINACALCET HYDROCHLORIDE [Concomitant]
     Indication: PRODUCT USED FOR UNKNOWN INDICATION
     Route: 048
     Dates: end: 20081112
  15. EPOEITIN [Concomitant]
     Indication: PRODUCT USED FOR UNKNOWN INDICATION
     Route: 042
     Dates: start: 20091201
  16. AGAFFIN [Concomitant]
     Indication: PRODUCT USED FOR UNKNOWN INDICATION
     Dosage: 2X1 TABLESPOON
     Route: 048
     Dates: start: 20100111, end: 20100208
  17. AERIUS [Concomitant]
     Indication: PRODUCT USED FOR UNKNOWN INDICATION
     Route: 048
     Dates: start: 20091020, end: 20100603
  18. ARANESP [Concomitant]
     Indication: PRODUCT USED FOR UNKNOWN INDICATION
     Route: 042
     Dates: start: 20091201
  19. DILATREND [Concomitant]
     Indication: PRODUCT USED FOR UNKNOWN INDICATION
     Route: 048
     Dates: start: 20100811, end: 20100904
  20. ITERIUM [Concomitant]
     Indication: PRODUCT USED FOR UNKNOWN INDICATION
     Route: 048
     Dates: start: 20100813
  21. NOMEXOR [Concomitant]
     Indication: PRODUCT USED FOR UNKNOWN INDICATION
     Route: 048
     Dates: start: 20100813
  22. BAYPRESS [Concomitant]
     Indication: PRODUCT USED FOR UNKNOWN INDICATION
     Route: 048
     Dates: start: 20100903
  23. LEXOTANIL [Concomitant]
     Indication: PRODUCT USED FOR UNKNOWN INDICATION
     Route: 048
     Dates: start: 20100813
  24. EXFORGE HCT [Concomitant]
     Indication: PRODUCT USED FOR UNKNOWN INDICATION
     Dosage: 160/12.5
     Route: 048
     Dates: start: 20100811

REACTIONS (4)
  - DILATATION ATRIAL [None]
  - HYPERTENSIVE CRISIS [None]
  - PERICARDIAL EFFUSION [None]
  - SINUS TACHYCARDIA [None]
